FAERS Safety Report 7638403-4 (Version None)
Quarter: 2011Q3

REPORT INFORMATION
  Report Type: 
  Country: None (occurrence: None)
  Receive Date: 20110720
  Receipt Date: 20110714
  Transmission Date: 20111222
  Serious: Yes (Life-Threatening, Hospitalization)
  Sender: FDA-Public Use
  Company Number: 2011SP032941

PATIENT
  Age: 57 Year
  Sex: Male

DRUGS (10)
  1. CHLORHEXIDINE GLUCONATE [Suspect]
     Indication: PRODUCT USED FOR UNKNOWN INDICATION
     Dosage: TOP
     Route: 061
     Dates: start: 20110620
  2. TEICOPLANIN (TEICOPLANIN) [Suspect]
     Indication: PROPHYLAXIS
     Dosage: 400 MG, IV
     Route: 042
     Dates: start: 20110620
  3. FENTANYL [Suspect]
     Indication: PRODUCT USED FOR UNKNOWN INDICATION
     Dosage: 1 MG, IV
     Route: 042
     Dates: start: 20110620
  4. GENTAMICIN [Suspect]
     Indication: PROPHYLAXIS
     Dosage: 120 MG, IV
     Route: 042
  5. LEVOBUPIVACAINE (LEVOBUPIVACAINE) [Suspect]
     Indication: NERVE BLOCK
     Dosage: 150 MG
     Dates: start: 20110620
  6. PROPOFOL [Suspect]
     Dosage: 200 MG, IV
     Route: 042
     Dates: start: 20110620
  7. LANSOPRAZOLE [Concomitant]
  8. DEXAMETHASONE [Suspect]
     Indication: PROPHYLAXIS
     Dosage: 8 MG, IV
     Route: 042
  9. VENTOLIN HFA [Concomitant]
  10. PREDNISOLONE [Concomitant]

REACTIONS (1)
  - ANAPHYLACTIC REACTION [None]
